FAERS Safety Report 16557177 (Version 1)
Quarter: 2019Q3

REPORT INFORMATION
  Report Type: Report from Study
  Country: IT (occurrence: IT)
  Receive Date: 20190711
  Receipt Date: 20190711
  Transmission Date: 20191004
  Serious: Yes (Hospitalization)
  Sender: FDA-Public Use
  Company Number: IT-BAYER-2019-130631

PATIENT
  Age: 47 Year
  Sex: Female

DRUGS (3)
  1. SYNFLEX [NAPROXEN SODIUM] [Suspect]
     Active Substance: NAPROXEN SODIUM
     Dosage: 6 DF, IN TOTAL
     Route: 048
     Dates: start: 20190623, end: 20190623
  2. BUSCOPAN [Suspect]
     Active Substance: BUTYLSCOPOLAMINE BROMIDE
     Dosage: 60 DF, TOTAL
     Route: 048
     Dates: start: 20190623, end: 20190623
  3. CIPROXIN 500 MG [Suspect]
     Active Substance: CIPROFLOXACIN
     Dosage: 6 DF, IN TOTAL
     Route: 048
     Dates: start: 20190623, end: 20190623

REACTIONS (3)
  - Diarrhoea [Recovered/Resolved]
  - Tachycardia [Recovered/Resolved]
  - Drug abuse [Recovered/Resolved]

NARRATIVE: CASE EVENT DATE: 20190623
